FAERS Safety Report 9494107 (Version 1)
Quarter: 2013Q3

REPORT INFORMATION
  Report Type: Spontaneous
  Country: SE (occurrence: None)
  Receive Date: 20130827
  Receipt Date: 20130827
  Transmission Date: 20140515
  Serious: Yes (Other)
  Sender: FDA-Public Use
  Company Number: 2013-3445

PATIENT
  Age: 68 Year
  Sex: Female

DRUGS (6)
  1. AZZALURE [Suspect]
     Indication: SKIN WRINKLING
     Dosage: 30 UNITS (30 UNITS, 1 IN 1 CYCLES ) UNKNOWN
     Dates: start: 20130604, end: 20130604
  2. SUB Q (HYALURONIC ACID) [Suspect]
     Indication: SKIN COSMETIC PROCEDURE
     Dates: start: 20130625, end: 20130625
  3. RESTYLANE PERLANE (HYALURONIC ACID) [Concomitant]
  4. TROMBYL (ACETYLSALICYLIC ACID) [Concomitant]
  5. UNSPECIFIED HYPERTENSIVE MEDICATION (ANTIHYPERTENSIVES) [Concomitant]
  6. SIMVASTATIN (SIMVASTATIN) [Concomitant]

REACTIONS (7)
  - Swelling face [None]
  - Facial pain [None]
  - Erythema [None]
  - Skin warm [None]
  - Skin disorder [None]
  - Soft tissue infection [None]
  - Injection related reaction [None]
